FAERS Safety Report 7596634-6 (Version None)
Quarter: 2011Q3

REPORT INFORMATION
  Report Type: 
  Country: None (occurrence: None)
  Receive Date: 20110708
  Receipt Date: 20110705
  Transmission Date: 20111222
  Serious: Yes (Other)
  Sender: FDA-Public Use
  Company Number: US-JNJFOC-20110103841

PATIENT
  Sex: Female

DRUGS (2)
  1. LEVAQUIN [Suspect]
     Indication: SINUSITIS
     Route: 048
     Dates: start: 20081101
  2. CIPROFLOXACIN [Suspect]
     Indication: INFECTION
     Route: 065

REACTIONS (3)
  - TENDON DISORDER [None]
  - DEPRESSION [None]
  - ROTATOR CUFF SYNDROME [None]
